FAERS Safety Report 16133657 (Version 2)
Quarter: 2019Q2

REPORT INFORMATION
  Report Type: Report from Study
  Country: IT (occurrence: IT)
  Receive Date: 20190329
  Receipt Date: 20190402
  Transmission Date: 20190711
  Serious: Yes (Hospitalization)
  Sender: FDA-Public Use
  Company Number: IT-ACCORD-116494

PATIENT
  Age: 54 Year
  Sex: Male

DRUGS (3)
  1. TEGRETOL [Suspect]
     Active Substance: CARBAMAZEPINE
     Indication: MAJOR DEPRESSION
     Dosage: STRENGTH: 200 MG
     Route: 048
     Dates: start: 20181216, end: 20181216
  2. QUETIAPINE. [Suspect]
     Active Substance: QUETIAPINE
     Indication: INSOMNIA
     Route: 048
     Dates: start: 20181216, end: 20181216
  3. PAROXETINE. [Suspect]
     Active Substance: PAROXETINE
     Indication: MAJOR DEPRESSION
     Route: 048
     Dates: start: 20181216, end: 20181216

REACTIONS (2)
  - Sopor [Recovering/Resolving]
  - Drug abuse [Unknown]

NARRATIVE: CASE EVENT DATE: 20181216
